FAERS Safety Report 7268272-6 (Version None)
Quarter: 2010Q4

REPORT INFORMATION
  Report Type: 
  Country: None (occurrence: None)
  Receive Date: 20101206
  Receipt Date: 20100913
  Transmission Date: 20110411
  Serious: No
  Sender: FDA-Public Use
  Company Number: 2010SP049075

PATIENT
  Age: 48 Year
  Sex: Female

DRUGS (7)
  1. SAPHRIS [Suspect]
     Indication: PRODUCT USED FOR UNKNOWN INDICATION
     Dosage: 5 MG; HS; SL
     Route: 060
     Dates: start: 20100811, end: 20100817
  2. LYRICA [Concomitant]
  3. NORTRIPTYLINE [Concomitant]
  4. ULTRAM [Concomitant]
  5. DEPAKOTE ER [Concomitant]
  6. PREVACID [Concomitant]
  7. SAVELLA [Concomitant]

REACTIONS (4)
  - INAPPROPRIATE SCHEDULE OF DRUG ADMINISTRATION [None]
  - OEDEMA PERIPHERAL [None]
  - PAIN IN EXTREMITY [None]
  - UNDERDOSE [None]
